FAERS Safety Report 11772494 (Version 5)
Quarter: 2016Q4

REPORT INFORMATION
  Report Type: Spontaneous
  Country: US (occurrence: US)
  Receive Date: 20151124
  Receipt Date: 20161111
  Transmission Date: 20170206
  Serious: Yes (Hospitalization, Other)
  Sender: FDA-Public Use
  Company Number: US-GLAXOSMITHKLINE-US2015GSK166764

PATIENT
  Age: 49 Year
  Sex: Female

DRUGS (7)
  1. FLOLAN [Suspect]
     Active Substance: EPOPROSTENOL SODIUM
     Indication: PULMONARY HYPERTENSION
     Dosage: 34 NG/KG/MIN CONTINUOUSLY
     Route: 042
     Dates: start: 20110114
  2. ADEMPAS [Concomitant]
     Active Substance: RIOCIGUAT
  3. FLOLAN [Suspect]
     Active Substance: EPOPROSTENOL SODIUM
     Dosage: 34 NG/KG/MIN CONTINUOUSLY
     Dates: start: 20110114
  4. FLOLAN [Suspect]
     Active Substance: EPOPROSTENOL SODIUM
     Dosage: 34 NG/KG/MIN, CO
     Dates: start: 20110114
  5. COUMADIN [Concomitant]
     Active Substance: WARFARIN SODIUM
  6. FLOLAN [Suspect]
     Active Substance: EPOPROSTENOL SODIUM
     Indication: PULMONARY HYPERTENSION
  7. FLOLAN [Suspect]
     Active Substance: EPOPROSTENOL SODIUM
     Indication: PULMONARY HYPERTENSION

REACTIONS (5)
  - Lung infection [Unknown]
  - Complication associated with device [Unknown]
  - Central venous catheterisation [Unknown]
  - Hospitalisation [Unknown]
  - Device related infection [Unknown]

NARRATIVE: CASE EVENT DATE: 20161022
